FAERS Safety Report 24919933 (Version 1)
Quarter: 2025Q1

REPORT INFORMATION
  Report Type: Report from Study
  Country: US (occurrence: US)
  Receive Date: 20250204
  Receipt Date: 20250204
  Transmission Date: 20250409
  Serious: No
  Sender: EXELIXIS
  Company Number: US-EXELIXIS-CABO-24074912

PATIENT
  Age: 61 Year
  Sex: Female

DRUGS (1)
  1. CABOMETYX [Suspect]
     Active Substance: CABOZANTINIB S-MALATE
     Indication: Renal cancer
     Dosage: 40 MG, QD
     Route: 048

REACTIONS (16)
  - Hyperkeratosis [Unknown]
  - Glossodynia [Unknown]
  - Muscle spasms [Unknown]
  - Constipation [Recovering/Resolving]
  - Fatigue [Recovering/Resolving]
  - Pruritus [Recovering/Resolving]
  - Dry skin [Unknown]
  - Pain in extremity [Unknown]
  - Faeces soft [Unknown]
  - Gait disturbance [Unknown]
  - Sinusitis [Unknown]
  - Serum ferritin increased [Unknown]
  - Infection [Unknown]
  - Nasal cyst [Unknown]
  - Tooth infection [Unknown]
  - Blood glucose increased [Unknown]

NARRATIVE: CASE EVENT DATE: 20240314
